FAERS Safety Report 9050994 (Version 4)
Quarter: 2013Q4

REPORT INFORMATION
  Report Type: Spontaneous
  Country: DK (occurrence: DK)
  Receive Date: 20130205
  Receipt Date: 20131202
  Transmission Date: 20140711
  Serious: Yes (Hospitalization, Disabling)
  Sender: FDA-Public Use
  Company Number: DK-PFIZER INC-2013041275

PATIENT
  Age: 69 Year
  Sex: Female

DRUGS (10)
  1. CONTALGIN [Suspect]
     Indication: PAIN
     Dosage: 10 MG
     Route: 048
     Dates: start: 201212, end: 20130107
  2. ARANESP [Concomitant]
     Indication: ANAEMIA
     Dosage: 20 UG INTERMITTENT
     Dates: start: 20120408
  3. CARVEDILOL [Concomitant]
     Indication: HYPERTENSION
     Dosage: 12.5 MG, 2X/DAY
     Route: 048
     Dates: start: 20120412, end: 20120412
  4. FURIX [Concomitant]
     Dosage: 40 MG 1.5 TIMES PER DAY
     Route: 048
     Dates: start: 20120323
  5. IMUREL [Concomitant]
     Indication: GLOMERULONEPHRITIS
     Dosage: 100 MG, 1X/DAY
     Route: 048
     Dates: start: 200204
  6. CALCIUM [Concomitant]
     Indication: OSTEOPOROSIS
     Dosage: 400 MG, 2X/DAY
     Route: 048
     Dates: start: 20120321
  7. LOSARTAN ^BLUEFISH^ [Concomitant]
     Indication: HYPERTENSION
     Dosage: 25 MG, 1X/DAY
     Route: 048
     Dates: start: 20110414
  8. PREDNISOLON [Concomitant]
     Indication: GLOMERULONEPHRITIS
     Dosage: 5 MG, 1X/DAY
     Route: 048
     Dates: start: 200204
  9. PINEX [Concomitant]
     Indication: PAIN
     Dosage: 1 G, AS NEEDED
     Route: 048
     Dates: start: 201301
  10. PANTOPRAZOL ^ACTAVIS^ [Concomitant]
     Dosage: 40 MG, 1X/DAY
     Route: 048
     Dates: start: 20120321

REACTIONS (4)
  - Nausea [Not Recovered/Not Resolved]
  - Vomiting [Not Recovered/Not Resolved]
  - Constipation [Not Recovered/Not Resolved]
  - Disability [Not Recovered/Not Resolved]
